FAERS Safety Report 8449835-9 (Version None)
Quarter: 2012Q2

REPORT INFORMATION
  Report Type: 
  Country: None (occurrence: None)
  Receive Date: 20120620
  Receipt Date: 20120611
  Transmission Date: 20120825
  Serious: Yes (Other)
  Sender: FDA-Public Use
  Company Number: DE-ELI_LILLY_AND_COMPANY-DE201203008194

PATIENT
  Age: 16 Year
  Sex: Male
  Weight: 67 kg

DRUGS (1)
  1. STRATTERA [Suspect]
     Indication: ATTENTION DEFICIT/HYPERACTIVITY DISORDER
     Dosage: UNK, UNKNOWN
     Dates: start: 20120101

REACTIONS (2)
  - ELECTROENCEPHALOGRAM ABNORMAL [None]
  - CONVULSION [None]
